FAERS Safety Report 13781167 (Version 1)
Quarter: 2017Q3

REPORT INFORMATION
  Report Type: Spontaneous
  Country: US (occurrence: US)
  Receive Date: 20170721
  Receipt Date: 20170721
  Transmission Date: 20171127
  Serious: No
  Sender: FDA-Public Use
  Company Number: None

PATIENT
  Sex: Male
  Weight: 97.5 kg

DRUGS (7)
  1. HEPARIN [Suspect]
     Active Substance: HEPARIN SODIUM
     Indication: CARDIAC ELECTROPHYSIOLOGIC STUDY
     Route: 040
     Dates: start: 20170706, end: 20170706
  2. AMIODARONE [Concomitant]
     Active Substance: AMIODARONE
  3. METOPROLOL. [Concomitant]
     Active Substance: METOPROLOL
  4. RIVAROXABAN [Concomitant]
     Active Substance: RIVAROXABAN
  5. HEPARIN [Suspect]
     Active Substance: HEPARIN SODIUM
     Indication: CARDIAC ABLATION
     Route: 040
     Dates: start: 20170706, end: 20170706
  6. ASPIRIN. [Concomitant]
     Active Substance: ASPIRIN
  7. TAMSULOSIN [Concomitant]
     Active Substance: TAMSULOSIN

REACTIONS (1)
  - Coagulation test abnormal [None]

NARRATIVE: CASE EVENT DATE: 20170706
